FAERS Safety Report 10425222 (Version 2)
Quarter: 2014Q4

REPORT INFORMATION
  Report Type: Spontaneous
  Country: US (occurrence: None)
  Receive Date: 20140722
  Receipt Date: 20141020
  Transmission Date: 20150528
  Serious: No
  Sender: FDA-Public Use
  Company Number: AEGR000477

PATIENT
  Age: 48 Year
  Sex: Male
  Weight: 79.4 kg

DRUGS (6)
  1. PROPECIA (FINASTERIDE) [Concomitant]
  2. JUXTAPID [Suspect]
     Active Substance: LOMITAPIDE MESYLATE
     Indication: TYPE IIA HYPERLIPIDAEMIA
     Route: 048
     Dates: end: 201406
  3. JUXTAPID [Suspect]
     Active Substance: LOMITAPIDE MESYLATE
     Indication: HYPERCHOLESTEROLAEMIA
     Route: 048
     Dates: end: 201406
  4. NIACIN (NICOTINIC ACID) [Concomitant]
  5. CRESTOR [Concomitant]
     Active Substance: ROSUVASTATIN CALCIUM
  6. ZETIA [Concomitant]
     Active Substance: EZETIMIBE

REACTIONS (4)
  - Abdominal pain [None]
  - Inappropriate schedule of drug administration [None]
  - Diarrhoea [None]
  - Alopecia [None]

NARRATIVE: CASE EVENT DATE: 20140515
